FAERS Safety Report 9241343 (Version 1)
Quarter: 2013Q1

REPORT INFORMATION
  Report Type: Spontaneous
  Country: US (occurrence: None)
  Receive Date: 20121120
  Receipt Date: 20121120
  Transmission Date: 20140127
  Serious: No
  Sender: FDA-Public Use
  Company Number: 1000038203

PATIENT
  Sex: Female

DRUGS (2)
  1. VIIBRYD [Suspect]
  2. METFORMIN ( METFORMIN) ( METFORMIN) [Concomitant]

REACTIONS (1)
  - Blood glucose increased [None]
